FAERS Safety Report 14326563 (Version 1)
Quarter: 2017Q4

REPORT INFORMATION
  Report Type: Spontaneous
  Country: BE (occurrence: BE)
  Receive Date: 20171227
  Receipt Date: 20171227
  Transmission Date: 20180321
  Serious: Yes (Other)
  Sender: FDA-Public Use
  Company Number: BE-ROCHE-2044343

PATIENT
  Age: 60 Year
  Sex: Female
  Weight: 51 kg

DRUGS (10)
  1. TACROLIMUS. [Concomitant]
     Active Substance: TACROLIMUS
     Route: 065
     Dates: end: 20171115
  2. CYCLOPHOSPHAMIDE. [Concomitant]
     Active Substance: CYCLOPHOSPHAMIDE
  3. CYMEVENE [Suspect]
     Active Substance: GANCICLOVIR
     Indication: CYTOMEGALOVIRUS INFECTION
     Route: 065
     Dates: start: 20171107
  4. DAPSONE. [Concomitant]
     Active Substance: DAPSONE
  5. AZA [Concomitant]
     Active Substance: AZATHIOPRINE
  6. METHYLPREDNISOLONE. [Concomitant]
     Active Substance: METHYLPREDNISOLONE
     Route: 065
  7. MMF [Concomitant]
     Active Substance: MYCOPHENOLATE MOFETIL
  8. EUSAPRIM (BELGIUM) [Concomitant]
  9. CSA [Concomitant]
     Active Substance: CYCLOSPORINE
  10. CYCLOSPORINE. [Concomitant]
     Active Substance: CYCLOSPORINE
     Route: 065
     Dates: start: 20171116

REACTIONS (2)
  - Thrombotic microangiopathy [Not Recovered/Not Resolved]
  - Hypertension [Unknown]

NARRATIVE: CASE EVENT DATE: 20171110
